FAERS Safety Report 5225912-0 (Version None)
Quarter: 2007Q1

REPORT INFORMATION
  Report Type: 
  Country: None (occurrence: None)
  Receive Date: 20070129
  Receipt Date: 20070118
  Transmission Date: 20070707
  Serious: Yes (Other)
  Sender: FDA-Public Use
  Company Number: FRWYE948126DEC06

PATIENT
  Age: 37 Year
  Sex: Female

DRUGS (2)
  1. EFFEXOR XR [Suspect]
     Indication: MENTAL DISORDER
     Dosage: SEE IMAGE
     Route: 048
     Dates: start: 20051001, end: 20061225
  2. EFFEXOR XR [Suspect]
     Indication: MENTAL DISORDER
     Dosage: SEE IMAGE
     Route: 048
     Dates: start: 20060126, end: 20070110

REACTIONS (8)
  - DEPRESSED LEVEL OF CONSCIOUSNESS [None]
  - DISTURBANCE IN ATTENTION [None]
  - ELECTROENCEPHALOGRAM ABNORMAL [None]
  - FEELING HOT [None]
  - GRAND MAL CONVULSION [None]
  - HEADACHE [None]
  - HYPERVENTILATION [None]
  - PARAESTHESIA [None]
